FAERS Safety Report 6642384 (Version 3)
Quarter: 2015Q3

REPORT INFORMATION
  Report Type: Spontaneous
  Country: FR (occurrence: FR)
  Receive Date: 20080516
  Receipt Date: 20150821
  Transmission Date: 20151125
  Serious: Yes (Hospitalization)
  Sender: FDA-Public Use
  Company Number: FR-PFIZER INC-2008040358

PATIENT

DRUGS (1)
  1. DOSTINEX [Suspect]
     Active Substance: CABERGOLINE
     Dosage: 0.25 MG, 2X/WEEK
     Route: 064
     Dates: start: 20070420, end: 20070820

REACTIONS (2)
  - Maternal exposure during pregnancy [Unknown]
  - Ultrasound antenatal screen abnormal [Unknown]
